FAERS Safety Report 15309705 (Version 1)
Quarter: 2018Q3

REPORT INFORMATION
  Report Type: Report from Study
  Country: TH (occurrence: TH)
  Receive Date: 20180823
  Receipt Date: 20180823
  Transmission Date: 20181010
  Serious: Yes (Other)
  Sender: FDA-Public Use
  Company Number: TH-ROCHE-2173616

PATIENT
  Age: 3 Year
  Sex: Male

DRUGS (4)
  1. PREDNISONE. [Suspect]
     Active Substance: PREDNISONE
     Indication: PROPHYLAXIS AGAINST GRAFT VERSUS HOST DISEASE
     Route: 065
  2. CIDOFOVIR. [Concomitant]
     Active Substance: CIDOFOVIR
     Route: 065
  3. CYCLOSPORINE. [Suspect]
     Active Substance: CYCLOSPORINE
     Indication: PROPHYLAXIS AGAINST GRAFT VERSUS HOST DISEASE
     Route: 065
  4. MYCOPHENOLATE MOFETIL. [Suspect]
     Active Substance: MYCOPHENOLATE MOFETIL
     Indication: PROPHYLAXIS AGAINST GRAFT VERSUS HOST DISEASE
     Route: 065

REACTIONS (1)
  - Cystitis haemorrhagic [Recovered/Resolved]
